FAERS Safety Report 5044826-2 (Version None)
Quarter: 2006Q2

REPORT INFORMATION
  Report Type: 
  Country: None (occurrence: None)
  Receive Date: 20060601
  Receipt Date: 20060307
  Transmission Date: 20061013
  Serious: No
  Sender: FDA-Public Use
  Company Number: 2006-BP-02623BP

PATIENT
  Age: 73 Year
  Sex: Female

DRUGS (8)
  1. SPIRIVA [Suspect]
     Indication: ASTHMA
     Dosage: 18 MCG (18 MCG, 1 IN 1 D), IH
     Route: 055
     Dates: start: 20050101
  2. TILADE [Suspect]
     Indication: ASTHMA
  3. PROTONIX [Concomitant]
  4. SINGULAIR [Concomitant]
  5. ALLEGRA [Concomitant]
  6. BONIVA (IBANDRONATE SODIUM) [Concomitant]
  7. PROZAC [Concomitant]
  8. HYDROCODONE (HYDROCODONE) [Concomitant]

REACTIONS (2)
  - PULMONARY FUNCTION TEST ABNORMAL [None]
  - TREMOR [None]
